FAERS Safety Report 6385877-5 (Version None)
Quarter: 2009Q4

REPORT INFORMATION
  Report Type: 
  Country: None (occurrence: None)
  Receive Date: 20091002
  Receipt Date: 20090921
  Transmission Date: 20100525
  Serious: Yes (Other)
  Sender: FDA-Public Use
  Company Number: ZA-ELI_LILLY_AND_COMPANY-ZA200909005247

PATIENT
  Sex: Female

DRUGS (7)
  1. HUMALOG [Suspect]
     Indication: TYPE 1 DIABETES MELLITUS
     Dosage: 5 IU, EACH MORNING
     Dates: start: 19930101, end: 20090801
  2. HUMALOG [Suspect]
     Dosage: 7 IU, DAILY (1/D)
     Dates: start: 19930101, end: 20090801
  3. HUMALOG [Suspect]
     Dosage: 7 IU, EACH EVENING
     Dates: start: 19930101, end: 20090801
  4. HUMALOG MIX 75/25 [Suspect]
     Indication: TYPE 1 DIABETES MELLITUS
     Dosage: 5 U, EACH MORNING
     Dates: start: 20090801, end: 20090921
  5. HUMALOG MIX 75/25 [Suspect]
     Dosage: 7 IU, DAILY (1/D)
     Dates: start: 20090801, end: 20090921
  6. HUMALOG MIX 75/25 [Suspect]
     Dosage: 7 IU, EACH EVENING
     Dates: start: 20090801, end: 20090821
  7. LANTUS [Concomitant]
     Indication: TYPE 1 DIABETES MELLITUS
     Dosage: 18 IU, UNKNOWN
     Dates: end: 20090101

REACTIONS (7)
  - ALTERED STATE OF CONSCIOUSNESS [None]
  - CEREBROVASCULAR ACCIDENT [None]
  - DRUG DISPENSING ERROR [None]
  - MUSCLE SPASTICITY [None]
  - SPEECH DISORDER [None]
  - TONGUE PARALYSIS [None]
  - WRONG DRUG ADMINISTERED [None]
